FAERS Safety Report 24687689 (Version 1)
Quarter: 2024Q4

REPORT INFORMATION
  Report Type: Spontaneous
  Country: JP (occurrence: JP)
  Receive Date: 20241202
  Receipt Date: 20241202
  Transmission Date: 20250115
  Serious: Yes (Other)
  Sender: BRISTOL-MYERS SQUIBB COMPANY
  Company Number: JP-BRISTOL-MYERS SQUIBB COMPANY-2024-186860

PATIENT
  Age: 55 Year
  Sex: Male

DRUGS (7)
  1. VIDAZA [Suspect]
     Active Substance: AZACITIDINE
     Indication: Myelodysplastic syndrome with excess blasts
     Route: 042
     Dates: start: 202405, end: 202406
  2. VYXEOS [Suspect]
     Active Substance: CYTARABINE\DAUNORUBICIN
     Indication: Acute myeloid leukaemia
     Dosage: 100 UNITS/M2/DAY
     Route: 042
     Dates: start: 20240625, end: 20240630
  3. VYXEOS [Suspect]
     Active Substance: CYTARABINE\DAUNORUBICIN
     Indication: Acute erythroid leukaemia
  4. VENETOCLAX [Concomitant]
     Active Substance: VENETOCLAX
     Indication: Myelodysplastic syndrome with excess blasts
     Dates: start: 202406, end: 202406
  5. MEROPENEM [Concomitant]
     Active Substance: MEROPENEM
     Indication: Febrile neutropenia
     Dates: start: 202406
  6. TEICOPLANIN [Concomitant]
     Active Substance: TEICOPLANIN
     Indication: Febrile neutropenia
     Dates: start: 202406
  7. PREDNISOLONE [Concomitant]
     Active Substance: PREDNISOLONE
     Indication: Product used for unknown indication
     Dates: start: 20240713

REACTIONS (8)
  - Therapeutic product effect incomplete [Not Recovered/Not Resolved]
  - Acute erythroid leukaemia [Unknown]
  - Platelet count decreased [Unknown]
  - Febrile neutropenia [Unknown]
  - Oral herpes [Recovering/Resolving]
  - Herpes simplex viraemia [Recovering/Resolving]
  - Drug eruption [Recovered/Resolved]
  - Dermatitis [Unknown]

NARRATIVE: CASE EVENT DATE: 20240101
